FAERS Safety Report 10755036 (Version 1)
Quarter: 2015Q1

REPORT INFORMATION
  Report Type: Spontaneous
  Country: US (occurrence: US)
  Receive Date: 20150202
  Receipt Date: 20150202
  Transmission Date: 20150721
  Serious: No
  Sender: FDA-Public Use
  Company Number: US-EMD SERONO-231830J10USA

PATIENT
  Age: 49 Year
  Sex: Female

DRUGS (2)
  1. REBIF [Suspect]
     Active Substance: INTERFERON BETA-1A
     Route: 058
     Dates: start: 20150123
  2. REBIF [Suspect]
     Active Substance: INTERFERON BETA-1A
     Indication: MULTIPLE SCLEROSIS
     Route: 058
     Dates: start: 20100115, end: 20100213

REACTIONS (8)
  - Pyrexia [Unknown]
  - Palpitations [Unknown]
  - Anxiety [Unknown]
  - Headache [Unknown]
  - Tremor [Unknown]
  - Chills [Unknown]
  - Panic reaction [Unknown]
  - Eye pain [Unknown]

NARRATIVE: CASE EVENT DATE: 201002
